FAERS Safety Report 4873939-0 (Version None)
Quarter: 2006Q1

REPORT INFORMATION
  Report Type: 
  Country: None (occurrence: None)
  Receive Date: 20060106
  Receipt Date: 20041110
  Transmission Date: 20060701
  Serious: Yes (Death, Hospitalization)
  Sender: FDA-Public Use
  Company Number: 200418682US

PATIENT
  Age: 21 Year
  Sex: Female

DRUGS (4)
  1. TAXOTERE [Suspect]
     Indication: SARCOMA
     Dosage: DOSE: UNK
  2. GEMZAR [Concomitant]
     Indication: SARCOMA
  3. FLAGYL [Concomitant]
     Dosage: DOSE: NOT PROVIDED
  4. IFOSFAMIDE [Concomitant]

REACTIONS (6)
  - ABDOMINAL PAIN [None]
  - BLOOD PRESSURE DECREASED [None]
  - CLOSTRIDIAL INFECTION [None]
  - COLITIS [None]
  - DISSEMINATED INTRAVASCULAR COAGULATION [None]
  - HEART RATE DECREASED [None]
